FAERS Safety Report 16750290 (Version 2)
Quarter: 2019Q3

REPORT INFORMATION
  Report Type: Spontaneous
  Country: PT (occurrence: PT)
  Receive Date: 20190828
  Receipt Date: 20190919
  Transmission Date: 20191005
  Serious: Yes (Other)
  Sender: FDA-Public Use
  Company Number: PT-PFIZER INC-2019366637

PATIENT
  Age: 50 Year
  Sex: Female
  Weight: 57 kg

DRUGS (2)
  1. LEDERTREXATO [Suspect]
     Active Substance: METHOTREXATE SODIUM
     Indication: RHEUMATOID ARTHRITIS
     Dosage: 10 MG, WEEKLY (4 TABLETS ONCE WEEKLY)
     Route: 048
     Dates: start: 20190530
  2. FOLICIL [Suspect]
     Active Substance: FOLIC ACID
     Indication: RHEUMATOID ARTHRITIS
     Dosage: 5 MG, WEEKLY (1 TABLET ONCE WEEKLY)
     Route: 048
     Dates: start: 20190601

REACTIONS (2)
  - Dyspepsia [Unknown]
  - Alopecia [Unknown]

NARRATIVE: CASE EVENT DATE: 20190610
